FAERS Safety Report 5571341-X (Version None)
Quarter: 2007Q4

REPORT INFORMATION
  Report Type: 
  Country: None (occurrence: None)
  Receive Date: 20071221
  Receipt Date: 20070928
  Transmission Date: 20080405
  Serious: No
  Sender: FDA-Public Use
  Company Number: A0667074A

PATIENT
  Sex: Female

DRUGS (1)
  1. FLUTICASONE PROPIONATE [Suspect]
     Indication: MULTIPLE ALLERGIES
     Dosage: 1PUFF PER DAY
     Route: 045
     Dates: start: 20070702, end: 20070703

REACTIONS (6)
  - DRUG INEFFECTIVE [None]
  - EPISTAXIS [None]
  - INSOMNIA [None]
  - NASAL CONGESTION [None]
  - NASAL ODOUR [None]
  - PHARMACEUTICAL PRODUCT COMPLAINT [None]
